FAERS Safety Report 18935359 (Version 4)
Quarter: 2021Q3

REPORT INFORMATION
  Report Type: Spontaneous
  Country: US (occurrence: US)
  Receive Date: 20210224
  Receipt Date: 20210909
  Transmission Date: 20211014
  Serious: Yes (Hospitalization, Other)
  Sender: FDA-Public Use
  Company Number: US-PFIZER INC-2021153899

PATIENT
  Age: 90 Year
  Sex: Female

DRUGS (3)
  1. IBRANCE [Suspect]
     Active Substance: PALBOCICLIB
     Dosage: 100 MG
     Dates: start: 20170111, end: 20210330
  2. IBRANCE [Suspect]
     Active Substance: PALBOCICLIB
     Dosage: 100 MG
     Dates: start: 20210127
  3. IBRANCE [Suspect]
     Active Substance: PALBOCICLIB
     Dosage: 100 MG
     Dates: start: 20210316

REACTIONS (13)
  - Haematochezia [Unknown]
  - Diverticulitis [Recovering/Resolving]
  - Pyrexia [Unknown]
  - Intestinal haemorrhage [Unknown]
  - Infection [Unknown]
  - Malaise [Unknown]
  - Ear pain [Unknown]
  - Rash [Unknown]
  - Plantar fasciitis [Unknown]
  - Arthralgia [Unknown]
  - Sciatica [Unknown]
  - White blood cell count decreased [Unknown]
  - Herpes zoster [Unknown]

NARRATIVE: CASE EVENT DATE: 202010
